FAERS Safety Report 21565884 (Version 2)
Quarter: 2022Q4

REPORT INFORMATION
  Report Type: Spontaneous
  Country: DE (occurrence: DE)
  Receive Date: 20221108
  Receipt Date: 20221115
  Transmission Date: 20230113
  Serious: Yes (Hospitalization, Other)
  Sender: FDA-Public Use
  Company Number: DE-MYLANLABS-2022M1118478

PATIENT
  Age: 32 Year
  Sex: Female

DRUGS (2)
  1. ETANERCEPT [Suspect]
     Active Substance: ETANERCEPT
     Indication: Product used for unknown indication
     Dosage: 50 MG, QW
     Route: 058
     Dates: start: 202209, end: 202209
  2. ADALIMUMAB [Concomitant]
     Active Substance: ADALIMUMAB
     Indication: Ankylosing spondylitis
     Dosage: 40 MG, Q2W
     Route: 058
     Dates: end: 202209

REACTIONS (9)
  - Deafness bilateral [Not Recovered/Not Resolved]
  - Vertigo [Unknown]
  - Pyrexia [Unknown]
  - VIIIth nerve injury [Unknown]
  - Deafness [Not Recovered/Not Resolved]
  - Inflammation [Recovering/Resolving]
  - Drug specific antibody [Not Recovered/Not Resolved]
  - Pruritus [Recovering/Resolving]
  - Rash [Unknown]

NARRATIVE: CASE EVENT DATE: 20220901
